FAERS Safety Report 8332030-1 (Version None)
Quarter: 2012Q2

REPORT INFORMATION
  Report Type: 
  Country: None (occurrence: None)
  Receive Date: 20120502
  Receipt Date: 20120427
  Transmission Date: 20120825
  Serious: Yes (Hospitalization, Other)
  Sender: FDA-Public Use
  Company Number: US-AMGEN-USASP2011063753

PATIENT
  Age: 48 Year
  Sex: Female
  Weight: 121.9 kg

DRUGS (13)
  1. ALBUTEROL [Concomitant]
     Dosage: UNK
  2. ADVAIR DISKUS 100/50 [Concomitant]
     Dosage: UNK
  3. ENBREL [Suspect]
     Indication: ARTHRITIS
     Dosage: 50 MG, QWK
     Route: 058
     Dates: start: 20081111
  4. ENBREL [Suspect]
     Indication: PSORIASIS
     Dosage: 50 MG, QWK
     Dates: start: 20081107
  5. SIMVASTATIN [Concomitant]
     Dosage: 40 MG, QD
  6. PULMICORT [Concomitant]
     Dosage: UNK
  7. OMEPRAZOLE [Concomitant]
     Dosage: UNK
  8. SINGULAIR [Concomitant]
     Dosage: UNK
  9. FUROSEMIDE [Concomitant]
     Dosage: 40 MG, QD
     Route: 048
  10. AMLODIPINE [Concomitant]
     Dosage: 12.5 MG, QD
  11. PREDNISONE [Concomitant]
     Dosage: 20 MG, QD
  12. HYDROCHLOROTHIAZIDE [Concomitant]
     Dosage: 12.5 MG, QD
  13. CELEXA [Concomitant]

REACTIONS (10)
  - BRONCHITIS [None]
  - OXYGEN SATURATION DECREASED [None]
  - HEART RATE IRREGULAR [None]
  - OEDEMA PERIPHERAL [None]
  - ASTHMA [None]
  - DYSPNOEA [None]
  - VITAL CAPACITY DECREASED [None]
  - NASOPHARYNGITIS [None]
  - SINUSITIS [None]
  - HYPOKALAEMIA [None]
